FAERS Safety Report 16624316 (Version 1)
Quarter: 2019Q3

REPORT INFORMATION
  Report Type: Spontaneous
  Country: NL (occurrence: NL)
  Receive Date: 20190724
  Receipt Date: 20190724
  Transmission Date: 20191004
  Serious: Yes (Hospitalization)
  Sender: FDA-Public Use
  Company Number: NL-AUROBINDO-AUR-APL-2019-042939

PATIENT

DRUGS (13)
  1. IPRAXA [Concomitant]
     Indication: PRODUCT USED FOR UNKNOWN INDICATION
     Dosage: ZN 3DD2ML
     Route: 065
     Dates: start: 20190221
  2. METOPROLOL. [Concomitant]
     Active Substance: METOPROLOL
     Indication: PRODUCT USED FOR UNKNOWN INDICATION
     Dosage: 1DD25MG
     Route: 065
     Dates: start: 20190216
  3. PARACETAMOL [Concomitant]
     Active Substance: ACETAMINOPHEN
     Indication: PRODUCT USED FOR UNKNOWN INDICATION
     Dosage: 4DD1000MG
     Route: 065
     Dates: start: 20190304
  4. FRAXIPARINE [Concomitant]
     Active Substance: NADROPARIN CALCIUM
     Indication: PRODUCT USED FOR UNKNOWN INDICATION
     Dosage: 1DD2850IE
     Route: 065
     Dates: start: 20190216
  5. METAMIZOL [Concomitant]
     Active Substance: METAMIZOLE SODIUM
     Indication: PRODUCT USED FOR UNKNOWN INDICATION
     Dosage: 4DD1000MG
     Route: 065
     Dates: start: 20190313
  6. GRANISETRON [Concomitant]
     Active Substance: GRANISETRON
     Indication: PRODUCT USED FOR UNKNOWN INDICATION
     Dosage: ZN 2DD1MG
     Route: 065
     Dates: start: 20190219
  7. TEMAZEPAM. [Concomitant]
     Active Substance: TEMAZEPAM
     Indication: PRODUCT USED FOR UNKNOWN INDICATION
     Dosage: ZN 1DD10MG
     Route: 065
     Dates: start: 20190217
  8. PANTOPRAZOL [Concomitant]
     Active Substance: PANTOPRAZOLE SODIUM
     Indication: PRODUCT USED FOR UNKNOWN INDICATION
     Dosage: 1DD40MG
     Route: 065
     Dates: start: 20190314
  9. VANCOMYCIN 1000MG POWDER FOR CONCENTRATE FOR SOLUTION FOR INFUSION [Suspect]
     Active Substance: VANCOMYCIN
     Indication: WOUND
     Dosage: 2DD1000MG,12 HOUR
     Route: 065
     Dates: start: 20190313, end: 20190406
  10. PSYLLIUMVEZELS [Concomitant]
     Indication: PRODUCT USED FOR UNKNOWN INDICATION
     Dosage: ZN 3DD1SACHET
     Route: 065
     Dates: start: 20190311
  11. OXYCODONE [Concomitant]
     Active Substance: OXYCODONE
     Dosage: ZN 6DD5MG
     Route: 065
     Dates: start: 20190219
  12. PREGABALINE [Concomitant]
     Active Substance: PREGABALIN
     Indication: PRODUCT USED FOR UNKNOWN INDICATION
     Dosage: 1DD75MG
     Route: 065
     Dates: start: 20190221
  13. OXYCODONE [Concomitant]
     Active Substance: OXYCODONE
     Indication: PRODUCT USED FOR UNKNOWN INDICATION
     Dosage: 2DD5MG,12 HOUR
     Route: 065
     Dates: start: 20190219

REACTIONS (4)
  - Rash erythematous [Recovered/Resolved]
  - Pyrexia [Recovered/Resolved]
  - Oedema [Recovered/Resolved]
  - Rash pruritic [Recovered/Resolved]

NARRATIVE: CASE EVENT DATE: 20190406
